FAERS Safety Report 7382996-1 (Version None)
Quarter: 2011Q1

REPORT INFORMATION
  Report Type: 
  Country: None (occurrence: None)
  Receive Date: 20110330
  Receipt Date: 20101015
  Transmission Date: 20110831
  Serious: Yes (Other)
  Sender: FDA-Public Use
  Company Number: US-BAYER-200942779NA

PATIENT
  Sex: Female
  Weight: 63.492 kg

DRUGS (2)
  1. LEVOTHYROXINE SODIUM [Concomitant]
  2. YASMIN [Suspect]
     Indication: CONTRACEPTION
     Dosage: UNK UNK, QD
     Route: 048
     Dates: start: 20040101, end: 20050701

REACTIONS (2)
  - THROMBOSIS [None]
  - PULMONARY EMBOLISM [None]
